FAERS Safety Report 25988597 (Version 1)
Quarter: 2025Q4

REPORT INFORMATION
  Report Type: Spontaneous
  Country: EU (occurrence: None)
  Receive Date: 20251103
  Receipt Date: 20251103
  Transmission Date: 20260118
  Serious: Yes (Other)
  Sender: ORION
  Company Number: EU-EMA-DD-20251023-7482707-100450

PATIENT
  Age: 59 Year
  Sex: Female

DRUGS (13)
  1. METHOTREXATE [Suspect]
     Active Substance: METHOTREXATE
     Indication: Immunosuppression
  2. METHOTREXATE [Suspect]
     Active Substance: METHOTREXATE
     Indication: Systemic lupus erythematosus
  3. PREDNISOLONE [Suspect]
     Active Substance: PREDNISOLONE
     Indication: Immunosuppression
     Dosage: BEFORE
  4. PREDNISOLONE [Suspect]
     Active Substance: PREDNISOLONE
     Dosage: AFTER
  5. MYCOPHENOLATE MOFETIL [Suspect]
     Active Substance: MYCOPHENOLATE MOFETIL
     Indication: Immunosuppression
  6. MYCOPHENOLATE MOFETIL [Suspect]
     Active Substance: MYCOPHENOLATE MOFETIL
     Indication: Systemic lupus erythematosus
  7. HYDROXYCHLOROQUINE [Suspect]
     Active Substance: HYDROXYCHLOROQUINE
     Indication: Immunosuppression
  8. DEXAMETHASONE [Suspect]
     Active Substance: DEXAMETHASONE
     Indication: Systemic lupus erythematosus
     Dosage: 20-50 MG, FOLLOWED BY 10 DAYS OF REST BEFORE START OF THE NEXT TREATMENT
  9. CYCLOPHOSPHAMIDE [Suspect]
     Active Substance: CYCLOPHOSPHAMIDE
     Indication: Immunosuppression
  10. CYCLOPHOSPHAMIDE [Suspect]
     Active Substance: CYCLOPHOSPHAMIDE
     Indication: Systemic lupus erythematosus
  11. BELIMUMAB [Suspect]
     Active Substance: BELIMUMAB
     Indication: Immunosuppression
  12. RITUXIMAB [Suspect]
     Active Substance: RITUXIMAB
     Indication: Systemic lupus erythematosus
  13. VELCADE [Suspect]
     Active Substance: BORTEZOMIB
     Indication: Systemic lupus erythematosus
     Dosage: 2 CYCLES?ON DAY 1, 4, 8 AND 11

REACTIONS (2)
  - Organising pneumonia [Unknown]
  - Product use in unapproved indication [Unknown]
